FAERS Safety Report 8219480-9 (Version None)
Quarter: 2012Q1

REPORT INFORMATION
  Report Type: 
  Country: None (occurrence: None)
  Receive Date: 20120319
  Receipt Date: 20120315
  Transmission Date: 20120608
  Serious: No
  Sender: FDA-Public Use
  Company Number: US-PFIZER INC-2012069086

PATIENT
  Sex: Female
  Weight: 57 kg

DRUGS (4)
  1. PROZAC [Concomitant]
     Dosage: UNK
  2. MYFORTIC [Concomitant]
     Indication: DEPRESSION
     Dosage: UNK
  3. LIPITOR [Suspect]
     Indication: BLOOD CHOLESTEROL INCREASED
     Dosage: 20 MG, 1X/DAY
     Route: 048
     Dates: start: 20110101, end: 20110901
  4. ZOCOR [Suspect]
     Indication: BLOOD CHOLESTEROL INCREASED
     Dosage: UNK
     Dates: start: 20110101

REACTIONS (2)
  - HEADACHE [None]
  - BLOOD CHOLESTEROL INCREASED [None]
